FAERS Safety Report 4706116-4 (Version None)
Quarter: 2005Q2

REPORT INFORMATION
  Report Type: 
  Country: None (occurrence: None)
  Receive Date: 20050627
  Receipt Date: 20050114
  Transmission Date: 20051028
  Serious: Yes (Other)
  Sender: FDA-Public Use
  Company Number: US-JNJFOC-20041104679

PATIENT
  Age: 81 Year
  Sex: Female

DRUGS (9)
  1. DURAGESIC-100 [Suspect]
     Indication: PAIN
     Dosage: 25 UG/HR TRANSDERMAL
     Route: 062
     Dates: start: 20041006, end: 20041018
  2. DURAGESIC-100 [Suspect]
     Indication: PAIN
     Dosage: 25 UG/HR TRANSDERMAL
     Route: 062
     Dates: start: 20041018, end: 20041024
  3. DURAGESIC-100 [Suspect]
     Indication: PAIN
     Dosage: 25 UG/HR TRANSDERMAL
     Route: 062
     Dates: start: 20041114
  4. ANTIVERT [Concomitant]
  5. TAGAMET [Concomitant]
  6. SEREVENT DISKUS (SALMETEROL XINAFOATE) [Concomitant]
  7. VOLTAREN [Concomitant]
  8. NORVASC [Concomitant]
  9. SYNTHROID [Concomitant]

REACTIONS (8)
  - ANXIETY [None]
  - APHASIA [None]
  - DIZZINESS [None]
  - INSOMNIA [None]
  - LETHARGY [None]
  - MALAISE [None]
  - SPEECH DISORDER [None]
  - TREMOR [None]
